FAERS Safety Report 5608016-4 (Version None)
Quarter: 2008Q1

REPORT INFORMATION
  Report Type: 
  Country: None (occurrence: None)
  Receive Date: 20080130
  Receipt Date: 20080129
  Transmission Date: 20080703
  Serious: Yes (Other)
  Sender: FDA-Public Use
  Company Number: A0706011A

PATIENT
  Age: 27 Year
  Sex: Female
  Weight: 81.4 kg

DRUGS (1)
  1. ALLI [Suspect]
     Indication: WEIGHT LOSS DIET
     Dosage: 3CAP PER DAY
     Route: 048
     Dates: start: 20080126

REACTIONS (5)
  - FLATULENCE [None]
  - METRORRHAGIA [None]
  - RECTAL DISCHARGE [None]
  - VAGINAL DISCHARGE [None]
  - VAGINAL HAEMORRHAGE [None]
